FAERS Safety Report 17051851 (Version 1)
Quarter: 2019Q4

REPORT INFORMATION
  Report Type: Spontaneous
  Country: JP (occurrence: JP)
  Receive Date: 20191120
  Receipt Date: 20191120
  Transmission Date: 20200122
  Serious: Yes (Other)
  Sender: FDA-Public Use
  Company Number: NVSJ2019JP004061

PATIENT
  Age: 46 Year
  Sex: Female

DRUGS (1)
  1. NEORAL [Suspect]
     Active Substance: CYCLOSPORINE
     Indication: PRODUCT USED FOR UNKNOWN INDICATION
     Dosage: 50 MG,UNK
     Route: 048

REACTIONS (3)
  - Dysgeusia [Unknown]
  - Upper-airway cough syndrome [Unknown]
  - Haemorrhagic diathesis [Unknown]
